FAERS Safety Report 21655094 (Version 1)
Quarter: 2022Q4

REPORT INFORMATION
  Report Type: Spontaneous
  Country: CN (occurrence: None)
  Receive Date: 20221129
  Receipt Date: 20221129
  Transmission Date: 20230113
  Serious: Yes (Hospitalization)
  Sender: FDA-Public Use
  Company Number: CN-ROCHE-3225671

PATIENT
  Sex: Female
  Weight: 55.5 kg

DRUGS (1)
  1. XELODA [Suspect]
     Active Substance: CAPECITABINE
     Indication: Rectal cancer
     Dosage: 1500 MG MORNING + 1000 MG EVENING
     Route: 048
     Dates: start: 20220901, end: 20220927

REACTIONS (3)
  - Gingival bleeding [Recovering/Resolving]
  - Ecchymosis [Recovering/Resolving]
  - International normalised ratio increased [Recovering/Resolving]

NARRATIVE: CASE EVENT DATE: 20220927
